FAERS Safety Report 8427785-1 (Version None)
Quarter: 2012Q2

REPORT INFORMATION
  Report Type: 
  Country: None (occurrence: None)
  Receive Date: 20120611
  Receipt Date: 20120601
  Transmission Date: 20120825
  Serious: Yes (Hospitalization)
  Sender: FDA-Public Use
  Company Number: MX-BAXTER-2012BAX004634

PATIENT
  Sex: Male
  Weight: 97 kg

DRUGS (6)
  1. OMEPRAZOLE [Concomitant]
     Route: 048
  2. DIANEAL [Suspect]
     Indication: PERITONEAL DIALYSIS
     Dosage: NIGHTLY
     Route: 033
     Dates: start: 20120327, end: 20120327
  3. TELMISARTAN [Concomitant]
     Indication: HYPERTENSION
     Dosage: Q12HRS
     Route: 048
  4. DIANEAL AL 4.25% [Interacting]
     Indication: PERITONEAL DIALYSIS
     Dates: start: 20120327, end: 20120327
  5. FUROSEMIDA                         /00032601/ [Concomitant]
     Dosage: OCCASIONALLY
     Route: 048
  6. DIANEAL AL 4.25% [Interacting]
     Route: 033

REACTIONS (1)
  - PERICARDIAL EFFUSION [None]
